FAERS Safety Report 5952879-X (Version None)
Quarter: 2008Q4

REPORT INFORMATION
  Report Type: 
  Country: None (occurrence: None)
  Receive Date: 20081114
  Receipt Date: 20081110
  Transmission Date: 20090506
  Serious: Yes (Other)
  Sender: FDA-Public Use
  Company Number: JP-JNJFOC-20081103142

PATIENT
  Age: 76 Year
  Sex: Male

DRUGS (1)
  1. ITIRZOLE [Suspect]
     Indication: ONYCHOMYCOSIS
     Route: 048

REACTIONS (2)
  - PLEURAL EFFUSION [None]
  - WEIGHT INCREASED [None]
